FAERS Safety Report 18515326 (Version 1)
Quarter: 2020Q4

REPORT INFORMATION
  Report Type: Spontaneous
  Country: NL (occurrence: NL)
  Receive Date: 20201118
  Receipt Date: 20201118
  Transmission Date: 20210114
  Serious: Yes (Life-Threatening)
  Sender: FDA-Public Use
  Company Number: NL-TEVA-2020-NL-1849124

PATIENT
  Sex: Female
  Weight: 69 kg

DRUGS (4)
  1. GABAPENTINE CAPSULE 100MG / BRAND NAME NOT SPECIFIED [Suspect]
     Active Substance: GABAPENTIN
     Indication: RAYNAUD^S PHENOMENON
     Dosage: 100 MILLIGRAM DAILY;
     Dates: start: 20201019, end: 20201025
  2. LISINOPRIL TABLET 10MG / BRAND NAME NOT SPECIFIED [Concomitant]
     Active Substance: LISINOPRIL
     Dosage: 10 MG, THERAPY START DATE AND END DATE: ASKED BUT UNKNOWN
  3. DIAZEPAM TABLET  2MG / BRAND NAME NOT SPECIFIED [Concomitant]
     Dosage: 2 MG, THERAPY START DATE AND END DATE: ASKED BUT UNKNOWN
  4. SIMVASTATINE TABLET FO 40MG / BRAND NAME NOT SPECIFIED [Concomitant]
     Active Substance: SIMVASTATIN
     Dosage: 40 MG,THERAPY START DATE AND END DATE: ASKED BUT UNKNOWN

REACTIONS (2)
  - Suicide attempt [Recovered/Resolved]
  - Insomnia [Recovered/Resolved]
